FAERS Safety Report 19771074 (Version 1)
Quarter: 2021Q3

REPORT INFORMATION
  Report Type: Spontaneous
  Country: US (occurrence: US)
  Receive Date: 20210901
  Receipt Date: 20210901
  Transmission Date: 20211014
  Serious: Yes (Other)
  Sender: FDA-Public Use
  Company Number: None

PATIENT
  Age: 50 Year
  Sex: Female
  Weight: 87 kg

DRUGS (4)
  1. LEFLUNOMIDE. [Suspect]
     Active Substance: LEFLUNOMIDE
     Indication: RHEUMATOID ARTHRITIS
     Route: 048
     Dates: start: 20210827, end: 20210901
  2. AMLODIPINE BESYLATE AND BENAZEPRIL HYDROCHLORIDE [Suspect]
     Active Substance: AMLODIPINE BESYLATE\BENAZEPRIL HYDROCHLORIDE
     Route: 048
  3. LEFLUNOMIDE 10 MG TABLET [Concomitant]
     Active Substance: LEFLUNOMIDE
     Dates: start: 20210827, end: 20210901
  4. AMLODIPINE?BENAZEPRIL 5?40 MG TABLET [Concomitant]

REACTIONS (1)
  - Lip swelling [None]

NARRATIVE: CASE EVENT DATE: 20210901
